FAERS Safety Report 17823361 (Version 2)
Quarter: 2020Q2

REPORT INFORMATION
  Report Type: Spontaneous
  Country: US (occurrence: US)
  Receive Date: 20200526
  Receipt Date: 20200619
  Transmission Date: 20200714
  Serious: No
  Sender: FDA-Public Use
  Company Number: US-AMGEN INC.-USASP2020083480

PATIENT
  Sex: Female

DRUGS (3)
  1. NORTRIPTYLINE [NORTRIPTYLINE HYDROCHLORIDE] [Concomitant]
     Indication: NAUSEA
  2. AIMOVIG [Suspect]
     Active Substance: ERENUMAB-AOOE
     Indication: MIGRAINE PROPHYLAXIS
     Dosage: 140 MILLIGRAM, QMO
     Route: 065
     Dates: start: 2019
  3. MAXALT [Concomitant]
     Active Substance: RIZATRIPTAN BENZOATE

REACTIONS (2)
  - Osteoarthritis [Not Recovered/Not Resolved]
  - Migraine [Not Recovered/Not Resolved]
